FAERS Safety Report 24227099 (Version 1)
Quarter: 2024Q3

REPORT INFORMATION
  Report Type: Spontaneous
  Country: IN (occurrence: IN)
  Receive Date: 20240820
  Receipt Date: 20240820
  Transmission Date: 20241017
  Serious: Yes (Other)
  Sender: NOVARTIS
  Company Number: IN-SANDOZ-SDZ2024IN072383

PATIENT
  Sex: Female

DRUGS (2)
  1. TACROLIMUS [Suspect]
     Active Substance: TACROLIMUS
     Indication: Renal transplant
     Dosage: 4 MG, QD (2 MG, BID)
     Route: 048
     Dates: start: 202305
  2. MYFORTIC [Suspect]
     Active Substance: MYCOPHENOLATE SODIUM
     Indication: Renal transplant
     Dosage: 720 MG, QD (360 MG, BID)
     Route: 048
     Dates: start: 202305

REACTIONS (5)
  - Acute kidney injury [Unknown]
  - Urosepsis [Recovered/Resolved]
  - Transplant dysfunction [Unknown]
  - Diabetes mellitus [Unknown]
  - Incorrect dose administered [Unknown]
